FAERS Safety Report 5056073-9 (Version None)
Quarter: 2006Q3

REPORT INFORMATION
  Report Type: 
  Country: None (occurrence: None)
  Receive Date: 20060717
  Receipt Date: 20060703
  Transmission Date: 20061208
  Serious: Yes (Other)
  Sender: FDA-Public Use
  Company Number: 8017753

PATIENT
  Sex: Female

DRUGS (3)
  1. KEPPRA [Suspect]
     Dosage: PO
     Route: 048
     Dates: end: 20060510
  2. PLACEBO [Suspect]
     Dosage: D PO
     Route: 048
     Dates: end: 20060510
  3. MOXIFLOXACIN HCL [Suspect]
     Dosage: 400 MG /D PO
     Route: 048
     Dates: start: 20060503, end: 20060510

REACTIONS (5)
  - BLOOD URINE PRESENT [None]
  - DRUG EXPOSURE DURING PREGNANCY [None]
  - HAEMORRHAGE [None]
  - PREGNANCY WITH CONTRACEPTIVE DEVICE [None]
  - UNINTENDED PREGNANCY [None]
